FAERS Safety Report 7530772-9 (Version None)
Quarter: 2011Q2

REPORT INFORMATION
  Report Type: 
  Country: None (occurrence: None)
  Receive Date: 20110607
  Receipt Date: 20110531
  Transmission Date: 20111010
  Serious: Yes (Other)
  Sender: FDA-Public Use
  Company Number: FR-MERCK-1106FRA00003

PATIENT
  Sex: Female

DRUGS (1)
  1. PROPECIA [Suspect]
     Route: 065
     Dates: start: 20080101, end: 20110301

REACTIONS (2)
  - ABORTION SPONTANEOUS [None]
  - DRUG EXPOSURE DURING PREGNANCY [None]
